FAERS Safety Report 5068243-4 (Version None)
Quarter: 2006Q3

REPORT INFORMATION
  Report Type: 
  Country: None (occurrence: None)
  Receive Date: 20060802
  Receipt Date: 20050617
  Transmission Date: 20061208
  Serious: Yes (Other)
  Sender: FDA-Public Use
  Company Number: US-BRISTOL-MYERS SQUIBB COMPANY-13008107

PATIENT
  Age: 60 Year
  Sex: Female
  Weight: 83 kg

DRUGS (7)
  1. COUMADIN [Suspect]
     Indication: HEART VALVE REPLACEMENT
     Dosage: UNKNOWN START DOSE; THEN 4MG X 4 DAYS + 2MG X 3 DAYS; 6/05: DOSE CHANGED TO 4MG X 2 WEEKS
     Route: 048
     Dates: start: 20000201
  2. GLUCOPHAGE [Suspect]
     Indication: DIABETES MELLITUS MANAGEMENT
     Route: 048
     Dates: start: 19970101
  3. PRANDIN [Suspect]
     Indication: DIABETES MELLITUS
     Dates: start: 20050622, end: 20050624
  4. LOPRESSOR [Concomitant]
     Dates: start: 20000201
  5. CAPOTEN [Concomitant]
  6. FOLIC ACID [Concomitant]
  7. XANAX [Concomitant]

REACTIONS (3)
  - BLOOD GLUCOSE INCREASED [None]
  - DYSPEPSIA [None]
  - INTERNATIONAL NORMALISED RATIO DECREASED [None]
